FAERS Safety Report 6970878-6 (Version None)
Quarter: 2010Q3

REPORT INFORMATION
  Report Type: 
  Country: None (occurrence: None)
  Receive Date: 20100908
  Receipt Date: 20100830
  Transmission Date: 20110219
  Serious: Yes (Hospitalization)
  Sender: FDA-Public Use
  Company Number: B0673180A

PATIENT
  Sex: Female
  Weight: 60.2 kg

DRUGS (4)
  1. LAPATINIB [Suspect]
     Indication: BREAST CANCER
     Dosage: 1500MG PER DAY
     Route: 048
     Dates: start: 20100510
  2. TRASTUZUMAB [Suspect]
     Indication: BREAST CANCER
     Dosage: 2MGK WEEKLY
     Route: 042
     Dates: start: 20100104
  3. FEMARA [Concomitant]
     Dosage: 2.5MG PER DAY
     Route: 048
  4. VENTOLIN [Concomitant]
     Route: 048

REACTIONS (1)
  - SKIN GRAFT [None]
